FAERS Safety Report 5802984-3 (Version None)
Quarter: 2008Q2

REPORT INFORMATION
  Report Type: 
  Country: None (occurrence: None)
  Receive Date: 20080630
  Receipt Date: 20080619
  Transmission Date: 20081010
  Serious: Yes (Other)
  Sender: FDA-Public Use
  Company Number: WSDF_00736

PATIENT
  Age: 50 Year
  Sex: Female

DRUGS (3)
  1. WINRHO SDF [Suspect]
     Dosage: 120 MCG
     Dates: start: 19870716
  2. WINRHO SDF [Suspect]
     Dosage: 120 MCG
     Dates: start: 19900508
  3. WINRHO SDF [Suspect]
     Indication: PROPHYLAXIS
     Dosage: 300 MCG
     Dates: start: 19900720

REACTIONS (1)
  - HEPATITIS C POSITIVE [None]
